FAERS Safety Report 5756511-X (Version None)
Quarter: 2008Q2

REPORT INFORMATION
  Report Type: 
  Country: None (occurrence: None)
  Receive Date: 20080603
  Receipt Date: 20080528
  Transmission Date: 20081010
  Serious: Yes (Hospitalization)
  Sender: FDA-Public Use
  Company Number: ES-JNJFOC-20080503815

PATIENT
  Age: 11 Year
  Sex: Male
  Weight: 43.7 kg

DRUGS (2)
  1. CONCERTA [Suspect]
     Route: 048
  2. CONCERTA [Suspect]
     Indication: ATTENTION DEFICIT/HYPERACTIVITY DISORDER
     Route: 048

REACTIONS (5)
  - ATAXIA [None]
  - BALANCE DISORDER [None]
  - DIPLOPIA [None]
  - NAUSEA [None]
  - VOMITING [None]
